FAERS Safety Report 5722046-3 (Version None)
Quarter: 2008Q2

REPORT INFORMATION
  Report Type: 
  Country: None (occurrence: None)
  Receive Date: 20080429
  Receipt Date: 20080418
  Transmission Date: 20081010
  Serious: Yes (Hospitalization, Other)
  Sender: FDA-Public Use
  Company Number: US-ELI_LILLY_AND_COMPANY-US200804004969

PATIENT
  Sex: Female
  Weight: 90.249 kg

DRUGS (16)
  1. HUMULIN 70/30 [Suspect]
     Dosage: 120 U, DAILY (1/D)
  2. HUMULIN 70/30 [Suspect]
     Dosage: 30 U, EACH MORNING
  3. HUMULIN 70/30 [Suspect]
     Dosage: 20 U, EACH EVENING
  4. HUMULIN 70/30 [Suspect]
     Indication: DIABETES MELLITUS
     Dosage: 120 U, DAILY (1/D)
  5. HUMULIN 70/30 [Suspect]
     Dosage: 30 U, EACH MORNING
  6. HUMULIN 70/30 [Suspect]
     Dosage: 20 U, EACH EVENING
  7. HUMULIN N [Suspect]
  8. HUMULIN R [Suspect]
  9. SPIRONOLACTONE [Concomitant]
  10. DITROPAN /USA/ [Concomitant]
  11. LASIX [Concomitant]
  12. POTASSIUM CHLORIDE [Concomitant]
  13. LOPRESSOR [Concomitant]
  14. DIGOXIN [Concomitant]
  15. COUMADIN [Concomitant]
  16. XALATAN [Concomitant]

REACTIONS (17)
  - ACIDOSIS [None]
  - ATRIAL FIBRILLATION [None]
  - BLOOD GLUCOSE INCREASED [None]
  - BRONCHITIS [None]
  - CARDIAC FAILURE CONGESTIVE [None]
  - CARDIAC OPERATION [None]
  - CATHETERISATION CARDIAC [None]
  - CELLULITIS [None]
  - DRUG INEFFECTIVE [None]
  - EYE DISORDER [None]
  - FIBROMYALGIA [None]
  - FLUID RETENTION [None]
  - INCORRECT DOSE ADMINISTERED [None]
  - PAIN [None]
  - STENT PLACEMENT [None]
  - WEIGHT DECREASED [None]
  - WEIGHT INCREASED [None]
